FAERS Safety Report 6820416-3 (Version None)
Quarter: 2010Q3

REPORT INFORMATION
  Report Type: 
  Country: None (occurrence: None)
  Receive Date: 20100707
  Receipt Date: 20100623
  Transmission Date: 20110219
  Serious: Yes (Hospitalization, Other)
  Sender: FDA-Public Use
  Company Number: FR-MYLANLABS-2010S1011163

PATIENT
  Age: 14 Year
  Sex: Male

DRUGS (5)
  1. TACROLIMUS [Suspect]
     Dosage: 0.1 MG/KG/DAY
     Route: 065
  2. TACROLIMUS [Suspect]
     Dosage: INITIAL DOSAGE WAS DECREASED BY ONE THIRD
     Route: 065
  3. AMLODIPINE [Interacting]
     Indication: HYPERTENSION
     Dosage: 10 MG/DAY
     Route: 065
  4. AMLODIPINE [Interacting]
     Dosage: 30 MG/DAY
     Route: 065
  5. AZATHIOPRINE [Concomitant]
     Dosage: 2 MG/KG/DAY
     Route: 065

REACTIONS (2)
  - DRUG INTERACTION [None]
  - RENAL FAILURE ACUTE [None]
